FAERS Safety Report 20784927 (Version 1)
Quarter: 2022Q2

REPORT INFORMATION
  Report Type: Spontaneous
  Country: US (occurrence: None)
  Receive Date: 20220503
  Receipt Date: 20220503
  Transmission Date: 20220721
  Serious: No
  Sender: FDA-Public Use
  Company Number: None

PATIENT
  Age: 60 Year
  Sex: Female
  Weight: 58.97 kg

DRUGS (11)
  1. EVEROLIMUS [Suspect]
     Active Substance: EVEROLIMUS
     Indication: Breast cancer female
     Dosage: FREQUENCY : DAILY;?
     Route: 048
     Dates: start: 202201
  2. CLOTRIMAZOLE [Concomitant]
     Active Substance: CLOTRIMAZOLE
  3. ARIMIDEX [Concomitant]
     Active Substance: ANASTROZOLE
  4. PROCHLORPERAZINE [Concomitant]
     Active Substance: PROCHLORPERAZINE
  5. LISINOPRIL [Concomitant]
     Active Substance: LISINOPRIL
  6. IBUPROFEN [Concomitant]
     Active Substance: IBUPROFEN
  7. FASLODEX [Concomitant]
     Active Substance: FULVESTRANT
  8. ACETAMINOPHEN [Concomitant]
     Active Substance: ACETAMINOPHEN
  9. DEXAMETHASONE [Suspect]
     Active Substance: DEXAMETHASONE
  10. OXYCODONE [Concomitant]
     Active Substance: OXYCODONE
  11. TRAMADOL [Concomitant]
     Active Substance: TRAMADOL

REACTIONS (1)
  - Disease progression [None]
